FAERS Safety Report 7953987-4 (Version None)
Quarter: 2011Q4

REPORT INFORMATION
  Report Type: 
  Country: None (occurrence: None)
  Receive Date: 20111202
  Receipt Date: 20111202
  Transmission Date: 20120403
  Serious: No
  Sender: FDA-Public Use
  Company Number: None

PATIENT
  Sex: Female
  Weight: 72.574 kg

DRUGS (1)
  1. ALLEGRA [Suspect]
     Indication: NASAL DISORDER
     Dates: start: 20111110, end: 20111130

REACTIONS (1)
  - COUGH [None]
